FAERS Safety Report 24321949 (Version 7)
Quarter: 2025Q3

REPORT INFORMATION
  Report Type: Report from Study
  Country: US (occurrence: US)
  Receive Date: 20240916
  Receipt Date: 20250812
  Transmission Date: 20251020
  Serious: Yes (Hospitalization, Disabling, Other)
  Sender: ALEXION PHARMACEUTICALS
  Company Number: 2024A205341

PATIENT
  Sex: Female
  Weight: 96.162 kg

DRUGS (17)
  1. TEZSPIRE [Suspect]
     Active Substance: TEZEPELUMAB-EKKO
     Dates: start: 20240903, end: 20240904
  2. TEZSPIRE [Suspect]
     Active Substance: TEZEPELUMAB-EKKO
  3. FASENRA [Suspect]
     Active Substance: BENRALIZUMAB
  4. FASENRA [Suspect]
     Active Substance: BENRALIZUMAB
  5. ROSUVASTATIN [Suspect]
     Active Substance: ROSUVASTATIN
     Dosage: 10 MILLIGRAM, QD
     Dates: start: 20240716
  6. BREZTRI [Suspect]
     Active Substance: BUDESONIDE\FORMOTEROL\GLYCOPYRROLATE
     Dosage: 160-9-4.8 MCG/ACT
  7. ACETAMINOPHEN [Concomitant]
     Active Substance: ACETAMINOPHEN
     Indication: Pain
     Dosage: 2 TABLETS BY MOUTH
     Dates: start: 20231120
  8. BENRALIZUMAB [Concomitant]
     Active Substance: BENRALIZUMAB
  9. BREZTRI [Concomitant]
     Active Substance: BUDESONIDE\FORMOTEROL\GLYCOPYRROLATE
  10. BUDESONIDE [Concomitant]
     Active Substance: BUDESONIDE
  11. CETIRIZINE HYDROCHLORIDE [Concomitant]
     Active Substance: CETIRIZINE HYDROCHLORIDE
  12. CLINDAMYCIN [Concomitant]
     Active Substance: CLINDAMYCIN
  13. DICLOFENAC SODIUM [Concomitant]
     Active Substance: DICLOFENAC SODIUM
  14. LIDOCAINE [Concomitant]
     Active Substance: LIDOCAINE
  15. PANTOPRAZOLE [Concomitant]
     Active Substance: PANTOPRAZOLE
  16. ROSUVASTATIN [Concomitant]
     Active Substance: ROSUVASTATIN
  17. SENNA [Concomitant]
     Active Substance: SENNOSIDES

REACTIONS (11)
  - Asthma [Unknown]
  - Erythema multiforme [Recovered/Resolved]
  - Herpes simplex reactivation [Unknown]
  - Pneumonia pseudomonal [Unknown]
  - Blister [Unknown]
  - Burning sensation [Unknown]
  - Pruritus [Unknown]
  - Gingival swelling [Unknown]
  - Lip swelling [Unknown]
  - Peripheral swelling [Unknown]
  - Drug ineffective [Unknown]
